FAERS Safety Report 4565341-6 (Version None)
Quarter: 2005Q1

REPORT INFORMATION
  Report Type: 
  Country: None (occurrence: None)
  Receive Date: 20050125
  Receipt Date: 20050125
  Transmission Date: 20050727
  Serious: Yes (Other)
  Sender: FDA-Public Use
  Company Number: None

PATIENT
  Age: 73 Year
  Sex: Male
  Weight: 115.9 kg

DRUGS (1)
  1. REMICADE [Suspect]
     Indication: RHEUMATOID ARTHRITIS
     Dosage: 600 MG  8 WEEKS INTRAVENOUS
     Route: 042
     Dates: start: 20020701, end: 20041015

REACTIONS (1)
  - RETINAL ARTERY OCCLUSION [None]
